FAERS Safety Report 15534717 (Version 2)
Quarter: 2018Q4

REPORT INFORMATION
  Report Type: Report from Study
  Country: None (occurrence: US)
  Receive Date: 20181022
  Receipt Date: 20181025
  Transmission Date: 20190205
  Serious: Yes (Other)
  Sender: FDA-Public Use
  Company Number: US-ABBVIE-17K-163-1857896-00

PATIENT
  Age: 45 Year
  Sex: Female

DRUGS (3)
  1. HUMIRA [Suspect]
     Active Substance: ADALIMUMAB
     Route: 058
     Dates: start: 201509, end: 201611
  2. HUMIRA [Suspect]
     Active Substance: ADALIMUMAB
     Route: 058
     Dates: start: 20170101
  3. HUMIRA [Suspect]
     Active Substance: ADALIMUMAB
     Indication: RHEUMATOID ARTHRITIS
     Route: 058
     Dates: end: 201502

REACTIONS (16)
  - Fibromyalgia [Not Recovered/Not Resolved]
  - Staphylococcal infection [Unknown]
  - Road traffic accident [Unknown]
  - Inflammatory marker increased [Unknown]
  - Systemic lupus erythematosus [Not Recovered/Not Resolved]
  - Musculoskeletal stiffness [Unknown]
  - Depression [Unknown]
  - Hypertension [Unknown]
  - Mobility decreased [Unknown]
  - Vitamin D decreased [Unknown]
  - Urinary tract infection [Recovering/Resolving]
  - Vitamin B12 decreased [Unknown]
  - Streptococcal infection [Unknown]
  - Bronchitis [Unknown]
  - Pain [Unknown]
  - Impaired healing [Unknown]

NARRATIVE: CASE EVENT DATE: 201502
